FAERS Safety Report 14625564 (Version 7)
Quarter: 2020Q1

REPORT INFORMATION
  Report Type: Spontaneous
  Country: US (occurrence: US)
  Receive Date: 20180312
  Receipt Date: 20200226
  Transmission Date: 20200409
  Serious: No
  Sender: FDA-Public Use
  Company Number: US-PFIZER INC-2018102675

PATIENT
  Age: 72 Year
  Sex: Female
  Weight: 81.65 kg

DRUGS (4)
  1. PRISTIQ EXTENDED-RELEASE [Concomitant]
     Active Substance: DESVENLAFAXINE SUCCINATE
     Dosage: UNK
     Dates: end: 201802
  2. LYRICA [Suspect]
     Active Substance: PREGABALIN
     Dosage: 200 MG, 1X/DAY(NIGHTLY AT BEDTIME)
     Route: 048
  3. FUROSEMIDE. [Concomitant]
     Active Substance: FUROSEMIDE
     Indication: RENAL DISORDER
  4. LYRICA [Suspect]
     Active Substance: PREGABALIN
     Indication: NEUROPATHY PERIPHERAL
     Dosage: 200 MG, 1X/DAY [NIGHTLY AT BEDTIME]
     Route: 048

REACTIONS (8)
  - Malaise [Unknown]
  - Limb discomfort [Unknown]
  - Pain in extremity [Unknown]
  - Pain [Unknown]
  - Wound haemorrhage [Unknown]
  - Insomnia [Unknown]
  - Pruritus [Unknown]
  - Scab [Unknown]
